FAERS Safety Report 7025887-8 (Version None)
Quarter: 2010Q4

REPORT INFORMATION
  Report Type: 
  Country: None (occurrence: None)
  Receive Date: 20101004
  Receipt Date: 20100920
  Transmission Date: 20110411
  Serious: No
  Sender: FDA-Public Use
  Company Number: US-BIOGENIDEC-2010BI032906

PATIENT
  Sex: Male

DRUGS (1)
  1. TYSABRI [Suspect]
     Indication: MULTIPLE SCLEROSIS

REACTIONS (7)
  - BLOOD CHOLESTEROL [None]
  - FATIGUE [None]
  - GAIT DISTURBANCE [None]
  - MUSCLE TWITCHING [None]
  - SINUS CONGESTION [None]
  - STRESS [None]
  - TEMPERATURE INTOLERANCE [None]
